FAERS Safety Report 4315825-0 (Version None)
Quarter: 2004Q1

REPORT INFORMATION
  Report Type: 
  Country: None (occurrence: None)
  Receive Date: 20040310
  Receipt Date: 20040223
  Transmission Date: 20041129
  Serious: Yes (Death)
  Sender: FDA-Public Use
  Company Number: S04-CAN-00872-01

PATIENT
  Sex: Male

DRUGS (6)
  1. CELEXA [Suspect]
     Indication: DEPRESSION
     Dosage: 40 MG QD PO
     Route: 048
     Dates: start: 20030623, end: 20030804
  2. CELEXA [Suspect]
     Indication: DEPRESSION
     Dosage: 20 MG QD PO
     Route: 048
     Dates: start: 20010101, end: 20030623
  3. IMIPRAMINE [Suspect]
     Indication: DEPRESSION
     Dosage: 300 MG QD PO
     Route: 048
     Dates: start: 20030623, end: 20030804
  4. IMIPRAMINE [Suspect]
     Indication: DEPRESSION
     Dosage: 25 MG QD PO
     Route: 048
     Dates: end: 20030623
  5. CLOZAPINE [Suspect]
     Dates: end: 20030804
  6. EPIVAL (VALPROATE SEMISODIUM) [Concomitant]

REACTIONS (6)
  - CHEST PAIN [None]
  - CONVULSION [None]
  - DRUG INTERACTION [None]
  - DRUG TOXICITY [None]
  - LOSS OF CONSCIOUSNESS [None]
  - SUDDEN DEATH [None]
